FAERS Safety Report 20015629 (Version 1)
Quarter: 2021Q4

REPORT INFORMATION
  Report Type: Spontaneous
  Country: US (occurrence: None)
  Receive Date: 20211030
  Receipt Date: 20211030
  Transmission Date: 20220303
  Serious: Yes (Hospitalization)
  Sender: FDA-Public Use
  Company Number: None

PATIENT
  Age: 35 Year
  Sex: Female
  Weight: 105.9 kg

DRUGS (6)
  1. CYCLOPHOSPHAMIDE [Suspect]
     Active Substance: CYCLOPHOSPHAMIDE
     Dates: end: 20211001
  2. CYTARABINE [Suspect]
     Active Substance: CYTARABINE
     Dates: end: 20211011
  3. MERCAPTOPURINE [Suspect]
     Active Substance: MERCAPTOPURINE
     Dates: end: 20211014
  4. METHOTREXATE [Suspect]
     Active Substance: METHOTREXATE
     Dates: end: 20211025
  5. ONCASPAR [Suspect]
     Active Substance: PEGASPARGASE
     Dates: end: 20211015
  6. VINCRISTINE SULFATE [Suspect]
     Active Substance: VINCRISTINE SULFATE
     Dates: end: 20211025

REACTIONS (1)
  - Cholecystitis acute [None]

NARRATIVE: CASE EVENT DATE: 20211027
